FAERS Safety Report 8471794-3 (Version None)
Quarter: 2012Q2

REPORT INFORMATION
  Report Type: 
  Country: None (occurrence: None)
  Receive Date: 20120627
  Receipt Date: 20110512
  Transmission Date: 20120825
  Serious: Yes (Other)
  Sender: FDA-Public Use
  Company Number: US-ROCHE-777445

PATIENT
  Sex: Female

DRUGS (2)
  1. PEGASYS [Suspect]
     Indication: HEPATITIS C
     Dosage: FORM: PRE-FILLED SYRINGE
     Route: 058
  2. RIBAVIRIN [Suspect]
     Indication: HEPATITIS C
     Dosage: IN DIVIDED DOSES
     Route: 048

REACTIONS (7)
  - RASH ERYTHEMATOUS [None]
  - ALOPECIA [None]
  - INJECTION SITE REACTION [None]
  - FATIGUE [None]
  - SKIN LESION [None]
  - NEOPLASM SKIN [None]
  - DRY SKIN [None]
